FAERS Safety Report 26211137 (Version 1)
Quarter: 2025Q4

REPORT INFORMATION
  Report Type: Spontaneous
  Country: EU (occurrence: EU)
  Receive Date: 20251230
  Receipt Date: 20251230
  Transmission Date: 20260117
  Serious: Yes (Hospitalization)
  Sender: ACCORD
  Company Number: None

PATIENT
  Age: 70 Year
  Sex: Male

DRUGS (4)
  1. FLUOROURACIL [Suspect]
     Active Substance: FLUOROURACIL
     Indication: Rectal adenocarcinoma
     Dosage: 4470 MG
     Dates: start: 20241111, end: 20251016
  2. IRINOTECAN [Suspect]
     Active Substance: IRINOTECAN
     Indication: Rectal adenocarcinoma
     Dosage: 232 MG, 20 CYCLES
     Dates: start: 20241111, end: 20251016
  3. ERBITUX [Suspect]
     Active Substance: CETUXIMAB
     Indication: Rectal adenocarcinoma
     Dosage: 5 MG/ML, 1 VIAL OF 20 ML, 860 MG, 20 CYCLES
     Dates: start: 20241111, end: 20251016
  4. LEUCOVORIN [Concomitant]
     Active Substance: LEUCOVORIN\LEUCOVORIN CALCIUM
     Indication: Rectal adenocarcinoma
     Dosage: 344 MG
     Dates: start: 20241111, end: 20251016

REACTIONS (1)
  - Herpes zoster cutaneous disseminated [Recovering/Resolving]

NARRATIVE: CASE EVENT DATE: 20251021
